FAERS Safety Report 6634353-0 (Version None)
Quarter: 2010Q1

REPORT INFORMATION
  Report Type: 
  Country: None (occurrence: None)
  Receive Date: 20100315
  Receipt Date: 20100308
  Transmission Date: 20100710
  Serious: Yes (Other)
  Sender: FDA-Public Use
  Company Number: US-JNJCH-2010006120

PATIENT
  Sex: Female

DRUGS (1)
  1. BENADRYL [Suspect]
     Indication: DRUG USE FOR UNKNOWN INDICATION
     Dosage: TEXT:UNKNOWN
     Route: 048

REACTIONS (4)
  - CONVULSION [None]
  - HALLUCINATION [None]
  - PAIN [None]
  - PRODUCT QUALITY ISSUE [None]
